FAERS Safety Report 18007122 (Version 1)
Quarter: 2020Q3

REPORT INFORMATION
  Report Type: Spontaneous
  Country: GB (occurrence: GB)
  Receive Date: 20200710
  Receipt Date: 20200710
  Transmission Date: 20201103
  Serious: Yes (Other)
  Sender: FDA-Public Use
  Company Number: GB-ASTRAZENECA-2020SE83423

PATIENT
  Age: 54 Year
  Sex: Male
  Weight: 80.2 kg

DRUGS (7)
  1. MEBEVERINE [Concomitant]
     Active Substance: MEBEVERINE
  2. PRAVASTATIN. [Concomitant]
     Active Substance: PRAVASTATIN
  3. IRBESARTAN. [Concomitant]
     Active Substance: IRBESARTAN
  4. FELODIPINE. [Concomitant]
     Active Substance: FELODIPINE
  5. METFORMIN [Concomitant]
     Active Substance: METFORMIN HYDROCHLORIDE
  6. DAPAGLIFLOZIN. [Suspect]
     Active Substance: DAPAGLIFLOZIN
     Indication: TYPE 2 DIABETES MELLITUS
     Dosage: 5.0MG UNKNOWN
     Route: 048
     Dates: start: 20200604, end: 20200618
  7. OMEPRAZOLE. [Concomitant]
     Active Substance: OMEPRAZOLE

REACTIONS (1)
  - Euglycaemic diabetic ketoacidosis [Recovering/Resolving]

NARRATIVE: CASE EVENT DATE: 20200618
